FAERS Safety Report 6493328-5 (Version None)
Quarter: 2009Q4

REPORT INFORMATION
  Report Type: 
  Country: None (occurrence: None)
  Receive Date: 20091214
  Receipt Date: 20091019
  Transmission Date: 20100525
  Serious: Yes (Disabling)
  Sender: FDA-Public Use
  Company Number: JP-SANOFI-AVENTIS-F01200900815

PATIENT
  Age: 79 Year
  Sex: Female
  Weight: 56 kg

DRUGS (25)
  1. CLOPIDOGREL BISULFATE [Suspect]
     Indication: ACUTE CORONARY SYNDROME
     Dosage: DOSE TEXT: STARTING DOSE
     Route: 048
     Dates: start: 20080708, end: 20080708
  2. CLOPIDOGREL BISULFATE [Suspect]
     Indication: ANGINA UNSTABLE
     Dosage: DOSE TEXT: STARTING DOSE
     Route: 048
     Dates: start: 20080708, end: 20080708
  3. CLOPIDOGREL BISULFATE [Suspect]
     Dosage: DOSE TEXT: MAINTENANCE DOSE
     Route: 048
     Dates: start: 20080709, end: 20081128
  4. CLOPIDOGREL BISULFATE [Suspect]
     Dosage: DOSE TEXT: MAINTENANCE DOSE
     Route: 048
     Dates: start: 20080709, end: 20081128
  5. CLOPIDOGREL BISULFATE [Suspect]
     Dosage: UNIT DOSE: 75 MG
     Route: 048
     Dates: start: 20081213, end: 20090325
  6. CLOPIDOGREL BISULFATE [Suspect]
     Dosage: UNIT DOSE: 75 MG
     Route: 048
     Dates: start: 20081213, end: 20090325
  7. ASPIRIN [Concomitant]
     Indication: ANGINA UNSTABLE
     Route: 048
     Dates: start: 20080708, end: 20080708
  8. ASPIRIN [Concomitant]
     Route: 048
     Dates: start: 20080709
  9. TAKEPRON [Concomitant]
     Route: 048
     Dates: end: 20081125
  10. TORASEMIDE [Concomitant]
     Route: 048
     Dates: start: 20080711, end: 20081201
  11. MEVALOTIN [Concomitant]
     Route: 048
     Dates: start: 20080804, end: 20081201
  12. SIGMART [Concomitant]
     Indication: ANGINA UNSTABLE
     Route: 048
     Dates: start: 20080804
  13. SIGMART [Concomitant]
  14. OMEPRAL [Concomitant]
     Route: 048
     Dates: start: 20081202
  15. OMEPRAL [Concomitant]
     Route: 042
     Dates: start: 20081201, end: 20081201
  16. FUROSEMIDE [Concomitant]
     Route: 048
     Dates: start: 20081226
  17. VENTOLIN [Concomitant]
     Route: 055
     Dates: start: 20081202, end: 20081207
  18. BISOLVON [Concomitant]
     Route: 055
     Dates: start: 20081202, end: 20081207
  19. PROPOFOL [Concomitant]
     Route: 042
     Dates: start: 20081201, end: 20081202
  20. MICARDIS [Concomitant]
     Route: 048
     Dates: start: 20081209, end: 20081212
  21. MICARDIS [Concomitant]
     Route: 048
     Dates: start: 20081213, end: 20090321
  22. SPIRONOLACTONE [Concomitant]
     Route: 048
     Dates: start: 20081213, end: 20090129
  23. NORVASC [Concomitant]
     Route: 048
     Dates: start: 20081217, end: 20090115
  24. WARFARIN SODIUM [Concomitant]
     Indication: THROMBOSIS PROPHYLAXIS
     Route: 048
     Dates: start: 20081219, end: 20081224
  25. WARFARIN SODIUM [Concomitant]
     Route: 048
     Dates: start: 20081225

REACTIONS (2)
  - CARDIAC FAILURE [None]
  - CARDIAC VALVE DISEASE [None]
